FAERS Safety Report 9907077 (Version 2)
Quarter: 2014Q1

REPORT INFORMATION
  Report Type: Other
  Country: US (occurrence: US)
  Receive Date: 20140218
  Receipt Date: 20140304
  Transmission Date: 20141002
  Serious: Yes (Hospitalization, Other)
  Sender: FDA-Public Use
  Company Number: US-ACORDA-ACO_101687_2014

PATIENT
  Age: 54 Year
  Sex: Male

DRUGS (2)
  1. AMPYRA [Suspect]
     Indication: MULTIPLE SCLEROSIS
     Dosage: 10 MG, BID
     Route: 048
     Dates: start: 20130610, end: 201402
  2. AMPYRA [Suspect]
     Indication: GAIT DISTURBANCE

REACTIONS (3)
  - Convulsion [Unknown]
  - Blood sodium decreased [Unknown]
  - Cerebrovascular accident [Unknown]
